FAERS Safety Report 4895928-2 (Version None)
Quarter: 2006Q1

REPORT INFORMATION
  Report Type: 
  Country: None (occurrence: None)
  Receive Date: 20060125
  Receipt Date: 20060119
  Transmission Date: 20060701
  Serious: Yes (Death)
  Sender: FDA-Public Use
  Company Number: 2006JP000116

PATIENT
  Age: 61 Year
  Sex: Male

DRUGS (9)
  1. TACROLIMUS CAPSULES(TACROLIMUS) CAPSULE [Suspect]
     Indication: RENAL TRANSPLANT
     Dosage: 2 MG, BID, ORAL
     Route: 048
     Dates: start: 20041119
  2. ASPIRIN [Concomitant]
  3. MANIDIPINE (MANIDIPINE) [Concomitant]
  4. ISOSORBIDE MONONITRATE [Concomitant]
  5. ROSUVASTATIN (ROSUVASTATIN) [Concomitant]
  6. ESOMEPROZOLE (ESOMEPRAZOLE) [Concomitant]
  7. HUMULIN N [Concomitant]
  8. ISOSORBIDE DINITRATE [Concomitant]
  9. ERYTHROPOIETIN (ERYTHROPOIETIN) [Concomitant]

REACTIONS (7)
  - DIABETES MELLITUS [None]
  - DIARRHOEA [None]
  - DYSPNOEA [None]
  - LEUKOPENIA [None]
  - PYREXIA [None]
  - TREMOR [None]
  - URINARY TRACT INFECTION [None]
